FAERS Safety Report 13562697 (Version 1)
Quarter: 2017Q2

REPORT INFORMATION
  Report Type: Spontaneous
  Country: NL (occurrence: NL)
  Receive Date: 20170519
  Receipt Date: 20170519
  Transmission Date: 20170830
  Serious: Yes (Hospitalization, Congenital Anomaly, Other)
  Sender: FDA-Public Use
  Company Number: NL-ASPEN PHARMA TRADING LIMITED US-AG-2017-003470

PATIENT

DRUGS (2)
  1. TIOGUANINE [Suspect]
     Active Substance: THIOGUANINE ANHYDROUS
     Indication: PRODUCT USED FOR UNKNOWN INDICATION
     Route: 064
  2. TUMOR NECROSIS FACTOR ALPHA (TNF-) INHIBITORS [Suspect]
     Active Substance: UNSPECIFIED INGREDIENT
     Indication: PRODUCT USED FOR UNKNOWN INDICATION
     Route: 064

REACTIONS (5)
  - Large for dates baby [Unknown]
  - Foetal exposure during pregnancy [Unknown]
  - Hypoglycaemia neonatal [Unknown]
  - Hypospadias [Unknown]
  - Arrhythmia [Recovered/Resolved]
